FAERS Safety Report 4634485-2 (Version None)
Quarter: 2005Q2

REPORT INFORMATION
  Report Type: 
  Country: None (occurrence: None)
  Receive Date: 20050412
  Receipt Date: 20050328
  Transmission Date: 20051028
  Serious: Yes (Hospitalization)
  Sender: FDA-Public Use
  Company Number: 2005BI006708

PATIENT
  Age: 47 Year
  Sex: Female
  Weight: 72.5755 kg

DRUGS (4)
  1. AVONEX [Suspect]
     Indication: MULTIPLE SCLEROSIS
     Dosage: 30 UG;QW;IM
     Route: 030
     Dates: start: 20021201, end: 20040101
  2. AVONEX [Suspect]
     Indication: MULTIPLE SCLEROSIS
     Dosage: 30 UG;QW;IM
     Route: 030
     Dates: start: 20040101
  3. SYNTHROID [Concomitant]
  4. FLONASE [Concomitant]

REACTIONS (12)
  - ARTHRITIS [None]
  - CONDITION AGGRAVATED [None]
  - CONTUSION [None]
  - DEPRESSION [None]
  - DIFFICULTY IN WALKING [None]
  - FALL [None]
  - GASTROOESOPHAGEAL REFLUX DISEASE [None]
  - HYPERTENSION [None]
  - INSOMNIA [None]
  - NASOPHARYNGITIS [None]
  - NERVOUSNESS [None]
  - PYREXIA [None]
